FAERS Safety Report 4385121-4 (Version None)
Quarter: 2004Q2

REPORT INFORMATION
  Report Type: 
  Country: None (occurrence: None)
  Receive Date: 20040624
  Receipt Date: 20040624
  Transmission Date: 20050107
  Serious: Yes (Life-Threatening)
  Sender: FDA-Public Use
  Company Number: None

PATIENT
  Age: 69 Year
  Sex: Male
  Weight: 79.1 kg

DRUGS (2)
  1. MIDAZOLAM HCL [Suspect]
     Indication: INTUBATION
     Dosage: 1-4 MG ONCE IV
     Route: 042
     Dates: start: 20040106, end: 20040106
  2. LORAZEPAM [Suspect]
     Indication: AGITATION
     Dosage: 1 MG ONCE IV
     Route: 042
     Dates: start: 20040106, end: 20040106

REACTIONS (1)
  - HYPOTENSION [None]
